FAERS Safety Report 6299732-2 (Version None)
Quarter: 2009Q3

REPORT INFORMATION
  Report Type: 
  Country: None (occurrence: None)
  Receive Date: 20090806
  Receipt Date: 20090729
  Transmission Date: 20100115
  Serious: Yes (Hospitalization, Other)
  Sender: FDA-Public Use
  Company Number: US-ABBOTT-09P-163-0588276-00

PATIENT
  Age: 62 Year
  Sex: Female

DRUGS (11)
  1. SYNTHROID [Suspect]
     Indication: HYPOTHYROIDISM
     Route: 048
     Dates: end: 20090101
  2. SYNTHROID [Suspect]
     Route: 048
  3. SYNTHROID [Suspect]
     Route: 048
  4. SYNTHROID [Suspect]
     Route: 048
  5. LEVOTHYROXINE [Suspect]
     Indication: HYPOTHYROIDISM
     Route: 048
  6. LEVOTHYROXINE [Suspect]
     Route: 051
     Dates: start: 20090501, end: 20090701
  7. CYTOMEL [Suspect]
     Indication: HYPOTHYROIDISM
     Route: 048
  8. THYROID TAB [Suspect]
     Indication: HYPOTHYROIDISM
     Route: 048
  9. UNITHROID [Suspect]
     Indication: HYPOTHYROIDISM
     Route: 048
  10. LEVOXYL [Suspect]
     Indication: HYPOTHYROIDISM
     Route: 048
  11. PARENTERAL LEVOTHYROXINE [Suspect]
     Indication: HYPOTHYROIDISM
     Route: 051

REACTIONS (4)
  - MOUTH ULCERATION [None]
  - RESPIRATORY DISORDER [None]
  - THROAT TIGHTNESS [None]
  - URTICARIA [None]
